FAERS Safety Report 15012003 (Version 1)
Quarter: 2018Q2

REPORT INFORMATION
  Report Type: Spontaneous
  Country: US (occurrence: US)
  Receive Date: 20180522
  Receipt Date: 20180522
  Transmission Date: 20180711
  Serious: Yes (Other)
  Sender: FDA-Public Use
  Company Number: None

PATIENT
  Age: 49 Year
  Sex: Female
  Weight: 134.72 kg

DRUGS (9)
  1. METOLAZONE. [Concomitant]
     Active Substance: METOLAZONE
  2. KLOR-CON [Concomitant]
     Active Substance: POTASSIUM CHLORIDE
  3. LISINEPRIL [Concomitant]
  4. DESVENLAFAXINE 50 MG GENERIC [Suspect]
     Active Substance: DESVENLAFAXINE
     Indication: DEPRESSION
     Route: 048
     Dates: start: 20170401, end: 20170502
  5. XANAX [Concomitant]
     Active Substance: ALPRAZOLAM
  6. ALLAPVRINOL [Concomitant]
  7. IUD NOS [Concomitant]
     Active Substance: COPPER OR LEVONORGESTREL
  8. DESVENLAFAXINE 50 MG GENERIC [Suspect]
     Active Substance: DESVENLAFAXINE
     Indication: ANXIETY
     Route: 048
     Dates: start: 20170401, end: 20170502
  9. ALLOPURINOL. [Concomitant]
     Active Substance: ALLOPURINOL

REACTIONS (4)
  - Irritability [None]
  - Agitation [None]
  - Anxiety [None]
  - Product substitution issue [None]

NARRATIVE: CASE EVENT DATE: 20170502
